FAERS Safety Report 6236177-5 (Version None)
Quarter: 2009Q2

REPORT INFORMATION
  Report Type: 
  Country: None (occurrence: None)
  Receive Date: 20090619
  Receipt Date: 20090608
  Transmission Date: 20091009
  Serious: Yes (Life-Threatening, Hospitalization, Other)
  Sender: FDA-Public Use
  Company Number: JP-PFIZER INC-2007108614

PATIENT
  Age: 78 Year

DRUGS (6)
  1. ZITHROMAX [Suspect]
     Indication: UPPER RESPIRATORY TRACT INFLAMMATION
     Route: 048
     Dates: start: 20060919
  2. ZITHROMAX [Suspect]
     Route: 048
     Dates: start: 20071201, end: 20071203
  3. LASIX [Concomitant]
     Route: 048
     Dates: start: 20030101
  4. ASPIRIN [Concomitant]
     Route: 048
     Dates: start: 20030101
  5. MUCOSTA [Concomitant]
     Route: 048
     Dates: start: 20030101
  6. NICORANDIL [Concomitant]
     Route: 048
     Dates: start: 20030101

REACTIONS (1)
  - PULMONARY ALVEOLAR HAEMORRHAGE [None]
